FAERS Safety Report 6571548-9 (Version None)
Quarter: 2010Q1

REPORT INFORMATION
  Report Type: 
  Country: None (occurrence: None)
  Receive Date: 20100205
  Receipt Date: 20100129
  Transmission Date: 20100710
  Serious: Yes (Disabling)
  Sender: FDA-Public Use
  Company Number: US-JNJFOC-20100201880

PATIENT
  Sex: Female

DRUGS (2)
  1. DURAGESIC-100 [Suspect]
     Indication: DRUG USE FOR UNKNOWN INDICATION
     Dosage: 100UG/HR+100UG/HR
     Route: 062
  2. DURAGESIC-100 [Suspect]
     Dosage: 100UG/HR+100UG/HR
     Route: 062

REACTIONS (2)
  - DISABILITY [None]
  - MALAISE [None]
